FAERS Safety Report 4555487-0 (Version None)
Quarter: 2005Q1

REPORT INFORMATION
  Report Type: 
  Country: None (occurrence: None)
  Receive Date: 20050118
  Receipt Date: 20050118
  Transmission Date: 20050727
  Serious: No
  Sender: FDA-Public Use
  Company Number: None

PATIENT
  Age: 64 Year
  Sex: Female

DRUGS (1)
  1. PAMIDRONATE DISODIUM [Suspect]
     Indication: NON-HODGKIN'S LYMPHOMA
     Dosage: 90 MG MONTHLY IV
     Route: 042
     Dates: start: 20000214, end: 20041124

REACTIONS (2)
  - JAW DISORDER [None]
  - OSTEONECROSIS [None]
